FAERS Safety Report 5692945-X (Version None)
Quarter: 2008Q2

REPORT INFORMATION
  Report Type: 
  Country: None (occurrence: None)
  Receive Date: 20080328
  Receipt Date: 20071010
  Transmission Date: 20081010
  Serious: Yes (Hospitalization)
  Sender: FDA-Public Use
  Company Number: US-WYE-H00624007

PATIENT
  Age: 50 Year
  Sex: Female
  Weight: 68.1 kg

DRUGS (12)
  1. PROTONIX [Suspect]
     Indication: GASTROOESOPHAGEAL REFLUX DISEASE
     Dosage: 40 MG 1X PER 1 DAY, ORAL
     Route: 048
     Dates: start: 20070201, end: 20071018
  2. CLONIDINE [Concomitant]
  3. SEROQUEL [Concomitant]
  4. METOCLOPRAMIDE [Concomitant]
  5. OXYCODONE HCL [Concomitant]
  6. OMACOR (OMEGA-3 POLYUNSATURATED FATTY ACIDS) [Concomitant]
  7. ESTRADIOL [Concomitant]
  8. ALBUTEROL [Concomitant]
  9. FLONASE [Concomitant]
  10. ZYRTEC [Concomitant]
  11. SIMVASTATIN [Concomitant]
  12. FENTANYL [Concomitant]

REACTIONS (7)
  - ALANINE AMINOTRANSFERASE INCREASED [None]
  - ASPARTATE AMINOTRANSFERASE INCREASED [None]
  - BLOOD ALKALINE PHOSPHATASE INCREASED [None]
  - BLOOD CHOLESTEROL INCREASED [None]
  - BLOOD TRIGLYCERIDES INCREASED [None]
  - HIGH DENSITY LIPOPROTEIN INCREASED [None]
  - LOW DENSITY LIPOPROTEIN INCREASED [None]
